FAERS Safety Report 14625144 (Version 1)
Quarter: 2018Q1

REPORT INFORMATION
  Report Type: Spontaneous
  Country: IN (occurrence: IN)
  Receive Date: 20180312
  Receipt Date: 20180312
  Transmission Date: 20180509
  Serious: Yes (Hospitalization)
  Sender: FDA-Public Use
  Company Number: IN-CORDEN PHARMA LATINA S.P.A.-IN-2018COR000012

PATIENT
  Age: 27 Year
  Sex: Male

DRUGS (4)
  1. ETOPOSIDE. [Suspect]
     Active Substance: ETOPOSIDE
     Indication: ALVEOLAR RHABDOMYOSARCOMA
     Dosage: UNK, RECEIVED THE FIRST CYCLE
     Route: 065
  2. VINCRISTINE [Suspect]
     Active Substance: VINCRISTINE
     Dosage: UNK, REPEATED ONE WEEK LATER
  3. IFOSFAMIDE AND MESNA [Suspect]
     Active Substance: IFOSFAMIDE\MESNA
     Indication: ALVEOLAR RHABDOMYOSARCOMA
     Dosage: UNK, RECEIVED THE FIRST CYCLE
     Route: 065
  4. VINCRISTINE [Suspect]
     Active Substance: VINCRISTINE
     Indication: ALVEOLAR RHABDOMYOSARCOMA
     Dosage: UNK, RECEIVED THE FIRST CYCLE
     Route: 042

REACTIONS (1)
  - Pyomyositis [Recovered/Resolved]
